FAERS Safety Report 10469724 (Version 1)
Quarter: 2014Q3

REPORT INFORMATION
  Report Type: Other
  Country: FR (occurrence: FR)
  Receive Date: 20140923
  Receipt Date: 20140923
  Transmission Date: 20150326
  Serious: Yes (Hospitalization)
  Sender: FDA-Public Use
  Company Number: FR-ASTELLAS-2014EU012655

PATIENT
  Age: 54 Year
  Sex: Male

DRUGS (1)
  1. MODIGRAF [Suspect]
     Active Substance: TACROLIMUS
     Indication: PROPHYLAXIS AGAINST TRANSPLANT REJECTION
     Dosage: UNK UNK, UNKNOWN FREQ.
     Route: 048
     Dates: start: 20130619, end: 20130705

REACTIONS (2)
  - Hepatic encephalopathy [Recovering/Resolving]
  - Disease complication [Recovering/Resolving]

NARRATIVE: CASE EVENT DATE: 201306
